FAERS Safety Report 9467889 (Version 3)
Quarter: 2014Q3

REPORT INFORMATION
  Report Type: Report from Study
  Country: MX (occurrence: MX)
  Receive Date: 20130821
  Receipt Date: 20140804
  Transmission Date: 20150326
  Serious: Yes (Other)
  Sender: FDA-Public Use
  Company Number: PHHY2013MX090359

PATIENT
  Age: 87 Year
  Sex: Female

DRUGS (13)
  1. RIVOTRIL [Concomitant]
     Active Substance: CLONAZEPAM
     Indication: SLEEP DISORDER
     Dosage: 6 UKN, DAILY
     Dates: start: 2010
  2. LOSECA [Concomitant]
     Indication: HIATUS HERNIA
  3. FOSAMAX PLUS D [Concomitant]
     Active Substance: ALENDRONATE SODIUM\CHOLECALCIFEROL
     Indication: SPINAL DISORDER
     Dosage: 1 UKN, QW
     Route: 065
     Dates: start: 2005
  4. VARTALON [Concomitant]
     Indication: BONE DISORDER
     Dosage: UNK UKN, UNK
  5. METEOSPASMYL [Concomitant]
     Active Substance: ALVERINE CITRATE\DIMETHICONE
     Indication: ANGIODYSPLASIA
     Dosage: UNK UKN, UNK
     Dates: start: 201304
  6. METEOSPASMYL [Concomitant]
     Active Substance: ALVERINE CITRATE\DIMETHICONE
     Indication: GASTRIC ULCER
  7. DIOVAN [Suspect]
     Active Substance: VALSARTAN
     Indication: HYPERTENSION
     Dosage: 1.5 DF (80MG) DAILY
     Route: 048
     Dates: end: 201308
  8. DIPHENIDOL [Concomitant]
     Active Substance: DIPHENIDOL
     Indication: VERTIGO
  9. LOSECA [Concomitant]
     Indication: GASTROOESOPHAGEAL REFLUX DISEASE
     Dosage: 1 UKN, DAILY
     Dates: start: 2011
  10. KETOROLAC [Concomitant]
     Active Substance: KETOROLAC\KETOROLAC TROMETHAMINE
     Indication: PAIN
     Dosage: UNK UKN, UNK
     Dates: start: 201308
  11. DIPHENIDOL [Concomitant]
     Active Substance: DIPHENIDOL
     Indication: DIZZINESS
     Dosage: 1 UKN DAILY, PRN
  12. EXFORGE HCT [Suspect]
     Active Substance: AMLODIPINE BESYLATE\HYDROCHLOROTHIAZIDE\VALSARTAN
     Indication: HYPERTENSION
     Dosage: 1 DF (160/5/12.5 MG), DAILY
     Route: 048
     Dates: start: 20130816, end: 20130909
  13. TYLEX                              /00116401/ [Concomitant]
     Active Substance: ACETAMINOPHEN\CODEINE PHOSPHATE
     Indication: PAIN
     Dosage: UNK UKN, UNK
     Dates: start: 2012

REACTIONS (2)
  - Rib fracture [Recovered/Resolved]
  - Oedema peripheral [Recovered/Resolved]

NARRATIVE: CASE EVENT DATE: 201308
